FAERS Safety Report 24273031 (Version 1)
Quarter: 2024Q3

REPORT INFORMATION
  Report Type: Other
  Country: CA (occurrence: CA)
  Receive Date: 20240902
  Receipt Date: 20240902
  Transmission Date: 20241017
  Serious: Yes (Other)
  Sender: APOTEX
  Company Number: CA-APOTEX-2022AP002362

PATIENT
  Age: 60 Year
  Sex: Male

DRUGS (6)
  1. CETIRIZINE [Suspect]
     Active Substance: CETIRIZINE HYDROCHLORIDE
     Indication: Product used for unknown indication
     Dosage: 10 MILLIGRAM, BID
     Route: 065
  2. OMALIZUMAB [Suspect]
     Active Substance: OMALIZUMAB
     Indication: Chronic spontaneous urticaria
     Dosage: 300 MILLIGRAM
     Route: 058
  3. OMALIZUMAB [Suspect]
     Active Substance: OMALIZUMAB
     Dosage: 300 MILLIGRAM, Q.M.T.
     Route: 058
  4. OMALIZUMAB [Suspect]
     Active Substance: OMALIZUMAB
     Dosage: 300 MILLIGRAM
     Route: 065
  5. OMALIZUMAB [Suspect]
     Active Substance: OMALIZUMAB
     Dosage: 300 MILLIGRAM, Q.O.WK.
     Route: 058
  6. BILASTINE [Concomitant]
     Active Substance: BILASTINE
     Indication: Product used for unknown indication
     Dosage: UNK, QD
     Route: 065

REACTIONS (17)
  - Hypertension [Recovered/Resolved]
  - Nasal congestion [Recovered/Resolved]
  - Perfume sensitivity [Recovered/Resolved]
  - Pruritus [Recovered/Resolved]
  - Sneezing [Recovered/Resolved]
  - White coat hypertension [Recovered/Resolved]
  - Urticaria [Recovered/Resolved]
  - Gastroenteritis viral [Recovered/Resolved]
  - Pain in extremity [Recovered/Resolved]
  - SARS-CoV-2 test positive [Recovered/Resolved]
  - Frustration tolerance decreased [Recovered/Resolved]
  - Haemorrhoids [Recovered/Resolved]
  - Proctalgia [Recovered/Resolved]
  - Rectal haemorrhage [Recovered/Resolved]
  - Hypersensitivity [Recovered/Resolved]
  - Therapy partial responder [Recovered/Resolved]
  - Therapeutic response decreased [Recovered/Resolved]
